FAERS Safety Report 9263584 (Version 1)
Quarter: 2013Q2

REPORT INFORMATION
  Report Type: Spontaneous
  Country: US (occurrence: US)
  Receive Date: 20130430
  Receipt Date: 20130430
  Transmission Date: 20140414
  Serious: Yes (Hospitalization, Other)
  Sender: FDA-Public Use
  Company Number: US-BAYER-2013-052014

PATIENT
  Age: 32 Year
  Sex: Female
  Weight: 77.1 kg

DRUGS (6)
  1. YAZ [Suspect]
     Indication: CONTRACEPTION
  2. YAZ [Suspect]
     Indication: PREMENSTRUAL DYSPHORIC DISORDER
  3. YASMIN [Suspect]
  4. FLAGYL [Concomitant]
     Dosage: 500 MG, BID
  5. HYDROQUINONE [Concomitant]
     Dosage: 4 %, UNK
  6. DOXYCYCLINE [Concomitant]
     Indication: ACNE
     Dosage: 100 MG, UNK
     Route: 048

REACTIONS (2)
  - Pulmonary embolism [None]
  - Deep vein thrombosis [None]
